FAERS Safety Report 12009984 (Version 1)
Quarter: 2016Q1

REPORT INFORMATION
  Report Type: Spontaneous
  Country: CA (occurrence: CA)
  Receive Date: 20160205
  Receipt Date: 20160205
  Transmission Date: 20160526
  Serious: Yes (Death)
  Sender: FDA-Public Use
  Company Number: CA-TEVA-631466ACC

PATIENT
  Age: 54 Year
  Sex: Female
  Weight: 92.62 kg

DRUGS (6)
  1. MEMANTINE. [Suspect]
     Active Substance: MEMANTINE
     Indication: DEMENTIA ALZHEIMER^S TYPE
     Dosage: 20 MILLIGRAM DAILY;
     Route: 048
  2. LIPITOR [Concomitant]
     Active Substance: ATORVASTATIN CALCIUM
  3. ARICEPT [Concomitant]
     Active Substance: DONEPEZIL HYDROCHLORIDE
  4. PARIET [Concomitant]
     Active Substance: RABEPRAZOLE SODIUM
  5. ZYPREXA [Concomitant]
     Active Substance: OLANZAPINE
  6. METFORMIN [Concomitant]
     Active Substance: METFORMIN HYDROCHLORIDE

REACTIONS (4)
  - Cardiac arrest [Fatal]
  - Sudden death [Fatal]
  - Seizure [Fatal]
  - Respiratory arrest [Fatal]
